FAERS Safety Report 13912452 (Version 1)
Quarter: 2017Q3

REPORT INFORMATION
  Report Type: Spontaneous
  Country: JP (occurrence: JP)
  Receive Date: 20170828
  Receipt Date: 20170828
  Transmission Date: 20171127
  Serious: Yes (Other)
  Sender: FDA-Public Use
  Company Number: JP-PFIZER INC-2017361873

PATIENT
  Age: 67 Year
  Sex: Female

DRUGS (5)
  1. JZOLOFT [Suspect]
     Active Substance: SERTRALINE HYDROCHLORIDE
     Dosage: UNK
     Route: 048
     Dates: start: 20170818
  2. DESYREL [Interacting]
     Active Substance: TRAZODONE HYDROCHLORIDE
     Dosage: UNK
     Route: 048
  3. SULPIRIDE [Interacting]
     Active Substance: SULPIRIDE
     Dosage: UNK
     Route: 048
  4. INSULIN [Concomitant]
     Active Substance: INSULIN NOS
     Indication: DIABETES MELLITUS
     Dosage: UNK
  5. CONSTAN /00595201/ [Concomitant]
     Active Substance: ALPRAZOLAM
     Dosage: UNK
     Route: 048

REACTIONS (3)
  - Drug interaction [Unknown]
  - Inappropriate antidiuretic hormone secretion [Unknown]
  - Blood electrolytes abnormal [Unknown]

NARRATIVE: CASE EVENT DATE: 20170821
